FAERS Safety Report 7824211-8 (Version None)
Quarter: 2011Q4

REPORT INFORMATION
  Report Type: 
  Country: None (occurrence: None)
  Receive Date: 20111019
  Receipt Date: 20111014
  Transmission Date: 20120403
  Serious: Yes (Life-Threatening, Hospitalization)
  Sender: FDA-Public Use
  Company Number: FR-AMGEN-FRACT2011050040

PATIENT
  Age: 73 Year
  Sex: Male
  Weight: 60.5 kg

DRUGS (5)
  1. METHOTREXATE [Concomitant]
     Indication: TRANSITIONAL CELL CARCINOMA
     Dosage: 52.5 MG, UNK
     Route: 042
     Dates: start: 20110724, end: 20110908
  2. CISPLATIN [Concomitant]
     Indication: TRANSITIONAL CELL CARCINOMA
     Dosage: 120 MG, UNK
     Route: 042
     Dates: start: 20110725, end: 20110908
  3. VINBLASTINE SULFATE [Concomitant]
     Indication: TRANSITIONAL CELL CARCINOMA
     Dosage: 5.2 MG, UNK
     Route: 042
     Dates: start: 20110725, end: 20110908
  4. PANITUMUMAB [Suspect]
     Indication: TRANSITIONAL CELL CARCINOMA
     Dosage: 400 MG, UNK
     Route: 042
     Dates: start: 20110725, end: 20110908
  5. DOXORUBICIN HCL [Concomitant]
     Indication: TRANSITIONAL CELL CARCINOMA
     Dosage: 52 MG, UNK
     Route: 042
     Dates: start: 20110725, end: 20110908

REACTIONS (1)
  - DIARRHOEA [None]
